FAERS Safety Report 4496541-1 (Version None)
Quarter: 2004Q3

REPORT INFORMATION
  Report Type: 
  Country: None (occurrence: None)
  Receive Date: 20040923
  Receipt Date: 20031029
  Transmission Date: 20050211
  Serious: Yes (Other)
  Sender: FDA-Public Use
  Company Number: 2003115413

PATIENT
  Age: 11 Year
  Sex: Female

DRUGS (1)
  1. ZYRTEC [Suspect]
     Indication: ILL-DEFINED DISORDER
     Dosage: 5MG, ORAL
     Route: 048
     Dates: start: 20030101

REACTIONS (2)
  - CONVULSION [None]
  - INSOMNIA [None]
